FAERS Safety Report 8004422-1 (Version None)
Quarter: 2011Q4

REPORT INFORMATION
  Report Type: 
  Country: None (occurrence: None)
  Receive Date: 20111221
  Receipt Date: 20111221
  Transmission Date: 20120403
  Serious: Yes (Hospitalization)
  Sender: FDA-Public Use
  Company Number: None

PATIENT
  Sex: Male
  Weight: 80 kg

DRUGS (2)
  1. BENDAMUSTINE CEPHALON [Suspect]
     Indication: CHRONIC LYMPHOCYTIC LEUKAEMIA
     Dosage: 90MG/M2 Q28 DAYS IV
     Route: 042
     Dates: start: 20111130
  2. RITUXIMAB GENENTECH [Suspect]
     Indication: CHRONIC LYMPHOCYTIC LEUKAEMIA
     Dosage: 375MG/M2 Q28 DAYS IV
     Route: 042
     Dates: start: 20111130

REACTIONS (5)
  - HAEMOGLOBIN DECREASED [None]
  - RESPIRATORY FAILURE [None]
  - HYPOGAMMAGLOBULINAEMIA [None]
  - SEPTIC SHOCK [None]
  - PNEUMONIA [None]
